FAERS Safety Report 15836550 (Version 1)
Quarter: 2018Q4

REPORT INFORMATION
  Report Type: Spontaneous
  Country: US (occurrence: US)
  Receive Date: 20181221
  Receipt Date: 20181221
  Transmission Date: 20190205
  Serious: No
  Sender: FDA-Public Use
  Company Number: None

PATIENT
  Age: 31 Year
  Sex: Female
  Weight: 98.43 kg

DRUGS (2)
  1. COLESEVALAM 625MG [Suspect]
     Active Substance: COLESEVELAM
     Indication: DIARRHOEA
     Route: 048
     Dates: start: 201807, end: 201811
  2. COLESEVALAM 625MG [Suspect]
     Active Substance: COLESEVELAM
     Indication: IRRITABLE BOWEL SYNDROME
     Route: 048
     Dates: start: 201807, end: 201811

REACTIONS (2)
  - Product substitution issue [None]
  - Drug ineffective [None]

NARRATIVE: CASE EVENT DATE: 20181129
